FAERS Safety Report 12973162 (Version 2)
Quarter: 2017Q2

REPORT INFORMATION
  Report Type: Spontaneous
  Country: US (occurrence: US)
  Receive Date: 20161124
  Receipt Date: 20170406
  Transmission Date: 20170830
  Serious: Yes (Other)
  Sender: FDA-Public Use
  Company Number: US-TEVA-715017ACC

PATIENT
  Age: 25 Year
  Sex: Female

DRUGS (2)
  1. PARAGARD T 380A [Suspect]
     Active Substance: COPPER
     Indication: CONTRACEPTION
     Dates: start: 201609, end: 20161114
  2. PARAGARD T 380A [Suspect]
     Active Substance: COPPER
     Dates: start: 20160812

REACTIONS (3)
  - Device dislocation [Recovered/Resolved]
  - Back pain [Recovered/Resolved]
  - Muscle spasms [Recovered/Resolved]

NARRATIVE: CASE EVENT DATE: 20161020
